APPROVED DRUG PRODUCT: PENICILLIN G SODIUM
Active Ingredient: PENICILLIN G SODIUM
Strength: 5,000,000 UNITS/VIAL
Dosage Form/Route: INJECTABLE;INJECTION
Application: A061935 | Product #001
Applicant: BRISTOL MYERS SQUIBB SPA
Approved: Approved Prior to Jan 1, 1982 | RLD: No | RS: No | Type: DISCN